FAERS Safety Report 21584765 (Version 1)
Quarter: 2022Q4

REPORT INFORMATION
  Report Type: Spontaneous
  Country: CH (occurrence: None)
  Receive Date: 20221111
  Receipt Date: 20221111
  Transmission Date: 20230113
  Serious: Yes (Other)
  Sender: FDA-Public Use
  Company Number: 2022A372428

PATIENT
  Age: 63 Year
  Sex: Female

DRUGS (9)
  1. OLAPARIB [Suspect]
     Active Substance: OLAPARIB
     Indication: Malignant neoplasm progression
     Route: 048
  2. CARBOPLATIN [Suspect]
     Active Substance: CARBOPLATIN
     Indication: Malignant neoplasm progression
     Dosage: UNK
     Route: 065
     Dates: start: 2008
  3. PACLITAXEL [Suspect]
     Active Substance: PACLITAXEL
     Indication: Malignant neoplasm progression
     Dosage: UNK
     Route: 065
     Dates: start: 2008
  4. BEVACIZUMAB [Suspect]
     Active Substance: BEVACIZUMAB
     Indication: Malignant neoplasm progression
     Dosage: UNK
     Route: 065
     Dates: start: 2008
  5. GEMCITABINE [Suspect]
     Active Substance: GEMCITABINE
     Indication: Malignant neoplasm progression
     Route: 065
  6. NIRAPARIB [Suspect]
     Active Substance: NIRAPARIB
     Indication: Malignant neoplasm progression
     Route: 065
  7. DOXORUBICIN HYDROCHLORIDE [Suspect]
     Active Substance: DOXORUBICIN HYDROCHLORIDE
     Indication: Malignant neoplasm progression
     Route: 065
  8. DOCETAXEL [Suspect]
     Active Substance: DOCETAXEL
     Indication: Malignant neoplasm progression
     Route: 065
  9. TOPOTECAN [Suspect]
     Active Substance: TOPOTECAN HYDROCHLORIDE
     Indication: Malignant neoplasm progression
     Route: 065

REACTIONS (2)
  - Malignant neoplasm progression [Unknown]
  - Drug ineffective [Unknown]

NARRATIVE: CASE EVENT DATE: 20200701
